FAERS Safety Report 24093150 (Version 3)
Quarter: 2024Q4

REPORT INFORMATION
  Report Type: Report from Study
  Country: IT (occurrence: IT)
  Receive Date: 20240715
  Receipt Date: 20241014
  Transmission Date: 20250115
  Serious: No
  Sender: SANDOZ
  Company Number: IT-SANDOZ-SDZ2024IT064952

PATIENT
  Sex: Male
  Weight: 24 kg

DRUGS (1)
  1. OMNITROPE [Suspect]
     Active Substance: SOMATROPIN
     Indication: Growth hormone deficiency
     Dosage: 0.8 MG
     Route: 058
     Dates: start: 20230317

REACTIONS (2)
  - Circumstance or information capable of leading to medication error [Unknown]
  - Device issue [Unknown]
